FAERS Safety Report 8082768-9 (Version None)
Quarter: 2012Q1

REPORT INFORMATION
  Report Type: 
  Country: None (occurrence: None)
  Receive Date: 20120127
  Receipt Date: 20110209
  Transmission Date: 20120608
  Serious: No
  Sender: FDA-Public Use
  Company Number: US-ABBOTT-11P-163-0704930-00

PATIENT
  Sex: Female
  Weight: 78.088 kg

DRUGS (3)
  1. HYZAAR [Concomitant]
     Indication: HYPERTENSION
  2. HUMIRA [Suspect]
     Indication: PSORIASIS
     Dosage: 1ST LOADING DOSE, ONCE
     Route: 058
     Dates: start: 20110111, end: 20110111
  3. HUMIRA [Suspect]
     Indication: PSORIATIC ARTHROPATHY
     Route: 058
     Dates: start: 20110125

REACTIONS (1)
  - INJECTION SITE PAIN [None]
